FAERS Safety Report 5098840-1 (Version None)
Quarter: 2006Q3

REPORT INFORMATION
  Report Type: 
  Country: None (occurrence: None)
  Receive Date: 20060907
  Receipt Date: 20060830
  Transmission Date: 20061208
  Serious: Yes (Death)
  Sender: FDA-Public Use
  Company Number: NO-ROCHE-461309

PATIENT
  Age: 45 Year
  Sex: Female

DRUGS (1)
  1. XELODA [Suspect]
     Dosage: FORMULATION: FILM COATED TABLETS
     Route: 048
     Dates: end: 20060615

REACTIONS (2)
  - ADVERSE EVENT [None]
  - HEPATIC FAILURE [None]
